FAERS Safety Report 4608784-4 (Version None)
Quarter: 2005Q1

REPORT INFORMATION
  Report Type: 
  Country: None (occurrence: None)
  Receive Date: 20050309
  Receipt Date: 20050221
  Transmission Date: 20050727
  Serious: Yes (Death)
  Sender: FDA-Public Use
  Company Number: WAES 0409USA02244

PATIENT
  Age: 79 Year
  Sex: Male

DRUGS (1)
  1. COZAAR [Suspect]
     Indication: HYPERTENSION
     Dosage: 25 MG/DAILY
     Route: 048
     Dates: start: 20020418, end: 20040111

REACTIONS (2)
  - CARDIAC FAILURE [None]
  - RENAL FAILURE [None]
